FAERS Safety Report 10076984 (Version 2)
Quarter: 2014Q2

REPORT INFORMATION
  Report Type: Spontaneous
  Country: FR (occurrence: None)
  Receive Date: 20140410
  Receipt Date: 20140623
  Transmission Date: 20141212
  Serious: Yes (Hospitalization, Other)
  Sender: FDA-Public Use
  Company Number: 2014000099

PATIENT
  Age: 44 Year
  Sex: Female

DRUGS (9)
  1. ACEON [Suspect]
     Indication: HYPERTENSION
     Route: 048
     Dates: start: 2012, end: 20131109
  2. BACLOFEN [Suspect]
     Indication: ALCOHOLISM
     Route: 048
     Dates: start: 2013, end: 20131109
  3. INDACATEROL MALEATE [Suspect]
     Indication: ASTHMA
     Route: 045
     Dates: end: 20131109
  4. HYDROCORTISONE SODIUM SUCCINATE [Suspect]
     Indication: PRODUCT USED FOR UNKNOWN INDICATION
     Route: 042
     Dates: start: 20131106, end: 20131109
  5. ONDANSETRON [Suspect]
     Indication: PRODUCT USED FOR UNKNOWN INDICATION
     Route: 048
     Dates: start: 20131106, end: 20131110
  6. KETOPROFEN [Suspect]
     Indication: PRODUCT USED FOR UNKNOWN INDICATION
     Route: 048
     Dates: start: 20131107, end: 20131112
  7. FLUOXETINE (FLUOXETINE) [Concomitant]
  8. PRAZEPAM (PRAZEPAM) [Concomitant]
  9. ZOLPIDEM (ZOLPIDEM) [Concomitant]

REACTIONS (13)
  - Acute interstitial pneumonitis [None]
  - Tachycardia [None]
  - Tibia fracture [None]
  - Fall [None]
  - Rash [None]
  - Hypotension [None]
  - Oxygen saturation decreased [None]
  - Pulmonary fibrosis [None]
  - Lung disorder [None]
  - Pulmonary alveolar haemorrhage [None]
  - Abscess [None]
  - Alveolitis allergic [None]
  - Haemoglobin decreased [None]
